FAERS Safety Report 9494222 (Version 1)
Quarter: 2013Q3

REPORT INFORMATION
  Report Type: Spontaneous
  Country: DK (occurrence: DK)
  Receive Date: 20130903
  Receipt Date: 20130903
  Transmission Date: 20140515
  Serious: Yes (Life-Threatening, Hospitalization)
  Sender: FDA-Public Use
  Company Number: DK-JNJFOC-20130817082

PATIENT
  Age: 70 Year
  Sex: Female
  Weight: 60 kg

DRUGS (9)
  1. XARELTO [Suspect]
     Indication: CEREBROVASCULAR ACCIDENT PROPHYLAXIS
     Route: 048
     Dates: start: 20130720, end: 20130724
  2. XARELTO [Suspect]
     Indication: ATRIAL FIBRILLATION
     Route: 048
     Dates: start: 20130720, end: 20130724
  3. PRIMPERAN [Concomitant]
     Indication: NAUSEA
     Route: 054
     Dates: start: 20130717, end: 20130731
  4. SELEXID [Concomitant]
     Indication: PYELONEPHRITIS ACUTE
     Route: 065
     Dates: start: 20130715, end: 20130726
  5. MORFIN [Concomitant]
     Indication: ABDOMINAL PAIN
     Route: 048
     Dates: start: 20130719
  6. CORDARONE [Concomitant]
     Indication: ATRIAL FLUTTER
     Route: 048
     Dates: start: 20130720
  7. DICLODAN [Concomitant]
     Indication: ABDOMINAL PAIN
     Route: 054
     Dates: start: 20130721
  8. LANSOPRAZOLE [Concomitant]
     Indication: PROPHYLAXIS AGAINST GASTROINTESTINAL ULCER
     Route: 048
     Dates: start: 20130715
  9. MOVICOL [Concomitant]
     Indication: CONSTIPATION
     Route: 048
     Dates: start: 20130717

REACTIONS (4)
  - Intra-abdominal haemorrhage [Recovered/Resolved with Sequelae]
  - Abdominal abscess [Not Recovered/Not Resolved]
  - Abdominal infection [Not Recovered/Not Resolved]
  - Abdominal pain [Unknown]
